FAERS Safety Report 11081702 (Version 3)
Quarter: 2015Q4

REPORT INFORMATION
  Report Type: Report from Study
  Country: US (occurrence: US)
  Receive Date: 20150501
  Receipt Date: 20151103
  Transmission Date: 20160304
  Serious: Yes (Other)
  Sender: FDA-Public Use
  Company Number: US-SANOFI-AVENTIS-2013SA047799

PATIENT
  Age: 53 Year
  Sex: Male

DRUGS (1)
  1. AUBAGIO [Suspect]
     Active Substance: TERIFLUNOMIDE
     Indication: MULTIPLE SCLEROSIS
     Route: 048
     Dates: start: 20130423

REACTIONS (17)
  - Dizziness [Unknown]
  - Somnolence [Not Recovered/Not Resolved]
  - Oedema [Not Recovered/Not Resolved]
  - Drug dose omission [Unknown]
  - Nerve compression [Unknown]
  - Fatigue [Unknown]
  - Foot fracture [Recovering/Resolving]
  - Nasopharyngitis [Unknown]
  - Myalgia [Unknown]
  - Pain [Unknown]
  - Optic nerve injury [Unknown]
  - Insomnia [Unknown]
  - Headache [Not Recovered/Not Resolved]
  - Nuclear magnetic resonance imaging abnormal [Unknown]
  - Depression [Unknown]
  - Tremor [Unknown]
  - Photopsia [Unknown]

NARRATIVE: CASE EVENT DATE: 201304
